FAERS Safety Report 7134189-0 (Version None)
Quarter: 2010Q4

REPORT INFORMATION
  Report Type: 
  Country: None (occurrence: None)
  Receive Date: 20101203
  Receipt Date: 20101129
  Transmission Date: 20110411
  Serious: No
  Sender: FDA-Public Use
  Company Number: US-B.I. PHARMACEUTICALS,INC./RIDGEFIELD-2010-BP-13567BP

PATIENT
  Sex: Female

DRUGS (6)
  1. SPIRIVA [Suspect]
     Indication: CHRONIC OBSTRUCTIVE PULMONARY DISEASE
     Dosage: 18 MCG
     Route: 055
     Dates: start: 20100601
  2. O2/CPAP [Concomitant]
     Indication: CHRONIC OBSTRUCTIVE PULMONARY DISEASE
     Dosage: 1.5 NR
  3. VYSTOLIC [Concomitant]
     Indication: HYPERTENSION
     Dosage: 40 MG
  4. MOBIC (GENERIC) [Concomitant]
     Indication: ARTHRITIS
     Dosage: NOSE PILLOWS
  5. XANAX [Concomitant]
     Indication: ANXIETY
     Dosage: NOSE PILLOWS
  6. XANAX [Concomitant]
     Indication: PANIC ATTACK

REACTIONS (1)
  - DRUG INEFFECTIVE [None]
